FAERS Safety Report 5170900-6 (Version None)
Quarter: 2006Q4

REPORT INFORMATION
  Report Type: 
  Country: None (occurrence: None)
  Receive Date: 20061204
  Receipt Date: 20061204
  Transmission Date: 20070319
  Serious: Yes (Hospitalization)
  Sender: FDA-Public Use
  Company Number: None

PATIENT
  Age: 45 Year
  Sex: Male
  Weight: 198.1 kg

DRUGS (2)
  1. WARFARIN SODIUM [Suspect]
     Indication: DEEP VEIN THROMBOSIS
     Dosage: 7.5-10.0 MG  QD ALTERNATING  PO
     Route: 048
  2. WARFARIN SODIUM [Suspect]
     Indication: PULMONARY EMBOLISM
     Dosage: 7.5-10.0 MG  QD ALTERNATING  PO
     Route: 048

REACTIONS (14)
  - BACK PAIN [None]
  - CHLAMYDIAL INFECTION [None]
  - CONJUNCTIVAL HAEMORRHAGE [None]
  - CONJUNCTIVITIS [None]
  - FAECES DISCOLOURED [None]
  - FLANK PAIN [None]
  - GONORRHOEA [None]
  - HAEMATURIA [None]
  - HEADACHE [None]
  - INCORRECT DOSE ADMINISTERED [None]
  - INTERNATIONAL NORMALISED RATIO INCREASED [None]
  - MOUTH HAEMORRHAGE [None]
  - TRICHOMONIASIS [None]
  - URINARY TRACT INFECTION [None]
